FAERS Safety Report 4492637-9 (Version None)
Quarter: 2004Q4

REPORT INFORMATION
  Report Type: 
  Country: None (occurrence: None)
  Receive Date: 20041029
  Receipt Date: 20041020
  Transmission Date: 20050328
  Serious: No
  Sender: FDA-Public Use
  Company Number: 209671

PATIENT
  Age: 47 Year
  Sex: Female
  Weight: 104.3 kg

DRUGS (19)
  1. AVASTIN [Suspect]
     Indication: BREAST CANCER METASTATIC
     Dosage: 15 MG/KG,INTRAVENOUS
     Route: 042
     Dates: end: 20040907
  2. TAXOTERE [Concomitant]
  3. LUPRON [Concomitant]
  4. KLONOPIN [Concomitant]
  5. LEXAPRO [Concomitant]
  6. VICODIN [Concomitant]
  7. AMBIEN [Concomitant]
  8. NORVASC [Concomitant]
  9. ZESTRIL [Concomitant]
  10. HYDROCHLOROTHIAZIDE [Concomitant]
  11. ZOFRAN [Concomitant]
  12. GLYBURIDE [Concomitant]
  13. DEXAMETHASONE [Concomitant]
  14. IMODIUM [Concomitant]
  15. NYSTATIN [Concomitant]
  16. HORMONE THERAPY NOS (HORMONES NOS) [Concomitant]
  17. FEMARA [Concomitant]
  18. SYNTHROID [Concomitant]
  19. BENADRYL [Concomitant]

REACTIONS (11)
  - DISEASE PROGRESSION [None]
  - DYSPHAGIA [None]
  - EPISTAXIS [None]
  - MUCOSAL INFLAMMATION [None]
  - NAUSEA [None]
  - PHARYNGOLARYNGEAL PAIN [None]
  - PLATELET COUNT DECREASED [None]
  - PROCTALGIA [None]
  - SINUS PAIN [None]
  - VAGINAL PAIN [None]
  - WHITE BLOOD CELL COUNT DECREASED [None]
